FAERS Safety Report 6081686-5 (Version None)
Quarter: 2009Q1

REPORT INFORMATION
  Report Type: 
  Country: None (occurrence: None)
  Receive Date: 20090213
  Receipt Date: 20090203
  Transmission Date: 20090719
  Serious: Yes (Death)
  Sender: FDA-Public Use
  Company Number: MPS1-1000179

PATIENT
  Age: 18 Year
  Sex: Female

DRUGS (1)
  1. ALDURAZYME [Suspect]
     Indication: MUCOPOLYSACCHARIDOSIS
     Dosage: 400 U, QW, INTRAVENOUS
     Route: 042
     Dates: start: 20031201, end: 20090201

REACTIONS (2)
  - DISEASE PROGRESSION [None]
  - MUCOPOLYSACCHARIDOSIS I [None]
